FAERS Safety Report 4916490-1 (Version None)
Quarter: 2006Q1

REPORT INFORMATION
  Report Type: 
  Country: None (occurrence: None)
  Receive Date: 20060220
  Receipt Date: 20060120
  Transmission Date: 20060701
  Serious: Yes (Other)
  Sender: FDA-Public Use
  Company Number: JP-SOLVAY-00306000305

PATIENT
  Age: 1 Day
  Sex: Female
  Weight: 2.16 kg

DRUGS (3)
  1. LUVOX [Suspect]
     Indication: DRUG EXPOSURE DURING PREGNANCY
     Dosage: DAILY DOSE: 200 MILLIGRAM(S)
     Route: 064
     Dates: start: 20050413, end: 20051109
  2. LULLAN [Suspect]
     Indication: DRUG EXPOSURE DURING PREGNANCY
     Dosage: DAILY DOSE: 16 MILLIGRAM(S)
     Route: 064
     Dates: start: 20050619
  3. LULLAN [Suspect]
     Dosage: DAILY DOSE: 4 MILLIGRAM(S)
     Route: 064
     Dates: end: 20051109

REACTIONS (7)
  - DRUG WITHDRAWAL SYNDROME NEONATAL [None]
  - HYPERTONIA NEONATAL [None]
  - INFANTILE APNOEIC ATTACK [None]
  - IRRITABILITY [None]
  - SMALL FOR DATES BABY [None]
  - TACHYPNOEA [None]
  - TREMOR NEONATAL [None]
